FAERS Safety Report 25204436 (Version 1)
Quarter: 2025Q2

REPORT INFORMATION
  Report Type: Report from Study
  Country: DE (occurrence: DE)
  Receive Date: 20250416
  Receipt Date: 20250416
  Transmission Date: 20250717
  Serious: Yes (Other)
  Sender: DAIICHI
  Company Number: DE-ASTRAZENECA-202504GLO005439DE

PATIENT
  Sex: Female
  Weight: 95 kg

DRUGS (8)
  1. ENHERTU [Suspect]
     Active Substance: FAM-TRASTUZUMAB DERUXTECAN-NXKI
     Indication: HER2 positive breast cancer
     Route: 042
     Dates: start: 20240201
  2. XGEVA [Concomitant]
     Active Substance: DENOSUMAB
     Indication: Product used for unknown indication
     Route: 058
     Dates: start: 20220512
  3. DEXAMETHASONE [Concomitant]
     Active Substance: DEXAMETHASONE
     Indication: Product used for unknown indication
     Route: 042
     Dates: start: 20240201
  4. RALOXIFEN AL [Concomitant]
     Indication: Nausea
     Route: 042
     Dates: start: 20240201
  5. FOSAPREPITANT DIMEGLUMINE [Concomitant]
     Active Substance: FOSAPREPITANT DIMEGLUMINE
     Indication: Nausea
     Route: 042
     Dates: start: 20240201
  6. ALIZAPRIDE HYDROCHLORIDE [Concomitant]
     Active Substance: ALIZAPRIDE HYDROCHLORIDE
     Indication: Vomiting
     Route: 048
     Dates: start: 20240201
  7. DOLOPARAMIDOL [Concomitant]
     Indication: Product used for unknown indication
     Dosage: 2 MILLIGRAM, TID
     Route: 048
     Dates: start: 20240221
  8. PREDNISOLON BLUE [Concomitant]
     Indication: Product used for unknown indication
     Dosage: 10 MILLIGRAM, TID
     Route: 048
     Dates: start: 20250130, end: 20250210

REACTIONS (1)
  - Ocular hyperaemia [Recovering/Resolving]

NARRATIVE: CASE EVENT DATE: 20250205
